FAERS Safety Report 20622725 (Version 5)
Quarter: 2022Q3

REPORT INFORMATION
  Report Type: Spontaneous
  Country: US (occurrence: US)
  Receive Date: 20220322
  Receipt Date: 20220923
  Transmission Date: 20221027
  Serious: No
  Sender: FDA-Public Use
  Company Number: US-NOVARTISTESTPH-NVSC2022US064439

PATIENT
  Sex: Female

DRUGS (3)
  1. TAFINLAR [Suspect]
     Active Substance: DABRAFENIB MESYLATE
     Indication: Thyroid cancer
     Dosage: 150 MG, BID
     Route: 048
     Dates: start: 20220120
  2. TAFINLAR [Suspect]
     Active Substance: DABRAFENIB MESYLATE
     Dosage: UNK
     Route: 065
     Dates: start: 20220121
  3. TAFINLAR [Suspect]
     Active Substance: DABRAFENIB MESYLATE
     Dosage: 150 MG, Q12H
     Route: 048
     Dates: start: 202201

REACTIONS (9)
  - Irritability [Unknown]
  - Fatigue [Unknown]
  - Dry skin [Unknown]
  - Myalgia [Unknown]
  - Alopecia [Unknown]
  - Depression [Unknown]
  - Musculoskeletal stiffness [Unknown]
  - Faeces discoloured [Unknown]
  - Product use in unapproved indication [Unknown]
